FAERS Safety Report 7278715-X (Version None)
Quarter: 2011Q1

REPORT INFORMATION
  Report Type: 
  Country: None (occurrence: None)
  Receive Date: 20110207
  Receipt Date: 20110126
  Transmission Date: 20110831
  Serious: Yes (Hospitalization)
  Sender: FDA-Public Use
  Company Number: PHHY2011IT06140

PATIENT
  Sex: Male

DRUGS (1)
  1. KETOPROFEN [Suspect]
     Indication: INFLUENZA
     Dates: end: 20110121

REACTIONS (1)
  - ANGIOEDEMA [None]
